FAERS Safety Report 8623878-4 (Version None)
Quarter: 2012Q3

REPORT INFORMATION
  Report Type: 
  Country: None (occurrence: None)
  Receive Date: 20120827
  Receipt Date: 20120809
  Transmission Date: 20120928
  Serious: No
  Sender: FDA-Public Use
  Company Number: US-009507513-1208USA004918

PATIENT

DRUGS (8)
  1. ZYRTEC [Concomitant]
  2. REBETOL [Suspect]
     Route: 048
  3. PEG-INTRON [Suspect]
     Dosage: 150 MICROGRAM, QW
     Route: 058
  4. LISINOPRIL [Concomitant]
  5. NORTRIPTYLINE HCL [Concomitant]
  6. ATENOLOL [Concomitant]
  7. PRILOSEC [Concomitant]
     Route: 048
  8. ESTRADIOL [Concomitant]

REACTIONS (3)
  - FATIGUE [None]
  - NAUSEA [None]
  - HEADACHE [None]
